FAERS Safety Report 14661836 (Version 1)
Quarter: 2018Q1

REPORT INFORMATION
  Report Type: Spontaneous
  Country: US (occurrence: US)
  Receive Date: 20180318
  Receipt Date: 20180318
  Transmission Date: 20180509
  Serious: Yes (Disabling)
  Sender: FDA-Public Use
  Company Number: None

PATIENT
  Age: 59 Year
  Sex: Female
  Weight: 48.6 kg

DRUGS (1)
  1. LEVOFLOXACIN. [Suspect]
     Active Substance: LEVOFLOXACIN
     Indication: WHITE BLOOD CELL COUNT INCREASED
     Dosage: ?          OTHER FREQUENCY:150MO;?
     Route: 042
     Dates: start: 20160818, end: 20160824

REACTIONS (6)
  - Incontinence [None]
  - Depression [None]
  - Insomnia [None]
  - Peripheral swelling [None]
  - Eating disorder [None]
  - Swelling face [None]

NARRATIVE: CASE EVENT DATE: 20160926
